FAERS Safety Report 7038396-7 (Version None)
Quarter: 2010Q4

REPORT INFORMATION
  Report Type: 
  Country: None (occurrence: None)
  Receive Date: 20101011
  Receipt Date: 20100414
  Transmission Date: 20110411
  Serious: Yes (Other)
  Sender: FDA-Public Use
  Company Number: US-PFIZER INC-2010047435

PATIENT
  Sex: Female

DRUGS (4)
  1. NEURONTIN [Suspect]
     Indication: ANXIETY
     Dosage: 1800 MG, 1X/DAY
     Route: 048
     Dates: start: 20100125
  2. LAMICTAL [Concomitant]
     Indication: DEPRESSION
     Dosage: 400 MG, 1X/DAY
     Route: 048
  3. WELLBUTRIN SR [Concomitant]
     Indication: DEPRESSION
     Dosage: 500 MG, 1X/DAY
     Route: 048
  4. ALTACE [Concomitant]
     Indication: HYPERTENSION
     Dosage: UNK MG, 1X/DAY
     Route: 048

REACTIONS (3)
  - BLOOD ALKALINE PHOSPHATASE INCREASED [None]
  - LYMPHOCYTE COUNT DECREASED [None]
  - OEDEMA PERIPHERAL [None]
